FAERS Safety Report 5834781-7 (Version None)
Quarter: 2008Q3

REPORT INFORMATION
  Report Type: 
  Country: None (occurrence: None)
  Receive Date: 20080804
  Receipt Date: 20080725
  Transmission Date: 20090109
  Serious: Yes (Death)
  Sender: FDA-Public Use
  Company Number: 163-21880-08061789

PATIENT
  Age: 82 Year
  Sex: Male

DRUGS (2)
  1. REVLIMID [Suspect]
     Indication: MULTIPLE MYELOMA
     Dosage: DAILY X21 DAYS, ORAL; 25MG - 15MG - 25MG, DAILY X21 DAYS, ORAL
     Route: 048
     Dates: start: 20070221, end: 20080201
  2. REVLIMID [Suspect]
     Indication: MULTIPLE MYELOMA
     Dosage: DAILY X21 DAYS, ORAL; 25MG - 15MG - 25MG, DAILY X21 DAYS, ORAL
     Route: 048
     Dates: start: 20080207, end: 20080501

REACTIONS (2)
  - MALIGNANT NEOPLASM PROGRESSION [None]
  - MULTIPLE MYELOMA [None]
